FAERS Safety Report 18189766 (Version 1)
Quarter: 2020Q3

REPORT INFORMATION
  Report Type: Spontaneous
  Country: US (occurrence: US)
  Receive Date: 20200825
  Receipt Date: 20200825
  Transmission Date: 20201103
  Serious: No
  Sender: FDA-Public Use
  Company Number: US-CELLTRION INC.-2019US025079

PATIENT

DRUGS (4)
  1. INFLECTRA [Suspect]
     Active Substance: INFLIXIMAB-DYYB
     Indication: ULCER
  2. PREDNISONE. [Concomitant]
     Active Substance: PREDNISONE
     Dosage: 5 MG, BID, AT NIGHT
     Route: 048
     Dates: start: 201908
  3. PREDNISONE. [Concomitant]
     Active Substance: PREDNISONE
     Dosage: 10 MG, QID, IN THE MORNING
     Route: 048
     Dates: start: 201908
  4. INFLECTRA [Suspect]
     Active Substance: INFLIXIMAB-DYYB
     Indication: CROHN^S DISEASE
     Dosage: 40 MG INTRAVENOUS INFUSION EVERY 8 WEEKS, CYCLIC
     Route: 042

REACTIONS (3)
  - Underdose [Unknown]
  - Condition aggravated [Recovering/Resolving]
  - Product use in unapproved indication [Unknown]
